FAERS Safety Report 18147082 (Version 1)
Quarter: 2020Q3

REPORT INFORMATION
  Report Type: Spontaneous
  Country: IN (occurrence: IN)
  Receive Date: 20200814
  Receipt Date: 20200814
  Transmission Date: 20201103
  Serious: Yes (Other)
  Sender: FDA-Public Use
  Company Number: IN-NOVAST LABORATORIES LTD.-2020NOV000290

PATIENT
  Age: 3 Year
  Sex: Female

DRUGS (2)
  1. TOPOTECAN [Suspect]
     Active Substance: TOPOTECAN HYDROCHLORIDE
     Indication: RETINOBLASTOMA
     Dosage: 1 MG IN 0.1 ML (1ST INJECTION), PERIOCULAR
  2. TOPOTECAN [Suspect]
     Active Substance: TOPOTECAN HYDROCHLORIDE
     Dosage: 20 MICROGRAM IN 0.1 ML (2ND INJECTION)

REACTIONS (2)
  - Erythema multiforme [Recovering/Resolving]
  - Product use in unapproved indication [Unknown]
